FAERS Safety Report 6327906 (Version 3)
Quarter: 2020Q3

REPORT INFORMATION
  Report Type: Report from Study
  Country: CH (occurrence: CH)
  Receive Date: 20070606
  Receipt Date: 20070907
  Transmission Date: 20201104
  Serious: Yes (Hospitalization)
  Sender: FDA-Public Use
  Company Number: HQWYE470901JUN07

PATIENT
  Age: 67 Year
  Sex: Male
  Weight: 84 kg

DRUGS (13)
  1. CYCLOSPORINE. [Suspect]
     Active Substance: CYCLOSPORINE
     Indication: PROPHYLAXIS AGAINST TRANSPLANT REJECTION
     Route: 048
     Dates: start: 20041117
  2. TORSEMIDE. [Concomitant]
     Active Substance: TORSEMIDE
     Indication: HYPERTENSION
     Route: 048
     Dates: start: 20050831
  3. METOPROLOL. [Concomitant]
     Active Substance: METOPROLOL
     Indication: HYPERTENSION
     Route: 048
     Dates: start: 20040524
  4. LAMIVUDINE. [Concomitant]
     Active Substance: LAMIVUDINE
     Indication: HEPATITIS B
     Route: 048
     Dates: start: 20040323
  5. IRBESARTAN. [Concomitant]
     Active Substance: IRBESARTAN
     Indication: HYPERTENSION
     Route: 048
     Dates: start: 20041011
  6. TORSEMIDE. [Concomitant]
     Active Substance: TORSEMIDE
     Indication: OEDEMA
  7. ALLOPURINOL. [Concomitant]
     Active Substance: ALLOPURINOL
     Indication: HYPERURICAEMIA
     Route: 048
     Dates: start: 20060516
  8. NAPROXEN. [Concomitant]
     Active Substance: NAPROXEN
     Dosage: DOSE UNKNOWN
     Route: 065
     Dates: start: 20060516
  9. GABAPENTIN. [Concomitant]
     Active Substance: GABAPENTIN
     Indication: POLYNEUROPATHY
     Route: 048
     Dates: start: 20041103, end: 20050831
  10. MAGNESIUM [Concomitant]
     Active Substance: MAGNESIUM
     Indication: MUSCLE SPASMS
     Dosage: DOSE UNKNOWN, AS NEEDED
     Route: 048
     Dates: start: 20040413
  11. TAMSULOSIN HYDROCHLORIDE. [Concomitant]
     Active Substance: TAMSULOSIN HYDROCHLORIDE
     Dosage: DOSE UNKNOWN
     Route: 065
     Dates: start: 20060531
  12. GABAPENTIN. [Concomitant]
     Active Substance: GABAPENTIN
     Dosage: DOSE UNKNOWN
     Route: 048
     Dates: start: 20050831
  13. SODIUM POLYSTYRENE SULFONATE. [Concomitant]
     Active Substance: SODIUM POLYSTYRENE SULFONATE
     Dosage: DOSE UNKNOWN
     Route: 065
     Dates: start: 20050501

REACTIONS (1)
  - Gastroenteritis [Recovered/Resolved]

NARRATIVE: CASE EVENT DATE: 20070415
